FAERS Safety Report 5244565-9 (Version None)
Quarter: 2007Q1

REPORT INFORMATION
  Report Type: 
  Country: None (occurrence: None)
  Receive Date: 20061201
  Receipt Date: 20060817
  Transmission Date: 20070707
  Serious: No
  Sender: FDA-Public Use
  Company Number: 2006PV019659

PATIENT
  Age: 57 Year
  Sex: Male
  Weight: 97.5234 kg

DRUGS (6)
  1. BYETTA [Suspect]
     Indication: DIABETES MELLITUS
     Dosage: 5 MCG; BID; SC
     Route: 058
     Dates: start: 20060815
  2. METFORMIN [Concomitant]
  3. GLUCOSE HX [Concomitant]
  4. CYMALTA [Concomitant]
  5. TOPAMAX [Concomitant]
  6. PEPCID [Concomitant]

REACTIONS (2)
  - ABDOMINAL DISTENSION [None]
  - THERAPEUTIC RESPONSE UNEXPECTED [None]
